FAERS Safety Report 6135986-0 (Version None)
Quarter: 2009Q1

REPORT INFORMATION
  Report Type: 
  Country: None (occurrence: None)
  Receive Date: 20090329
  Receipt Date: 20081125
  Transmission Date: 20090719
  Serious: No
  Sender: FDA-Public Use
  Company Number: US-BAUSCH-2008BL005002

PATIENT
  Sex: Female

DRUGS (1)
  1. LOTEMAX [Suspect]

REACTIONS (2)
  - EYE PAIN [None]
  - HYPERSENSITIVITY [None]
